FAERS Safety Report 4718101-7 (Version None)
Quarter: 2005Q3

REPORT INFORMATION
  Report Type: 
  Country: None (occurrence: None)
  Receive Date: 20050720
  Receipt Date: 20050711
  Transmission Date: 20060218
  Serious: Yes (Hospitalization)
  Sender: FDA-Public Use
  Company Number: FR-BRISTOL-MYERS SQUIBB COMPANY-13036470

PATIENT
  Age: 34 Year
  Sex: Female

DRUGS (6)
  1. COAPROVEL TABS 300MG/12.5MG [Suspect]
     Indication: HYPERTENSION
     Route: 048
     Dates: end: 20050530
  2. COAPROVEL TABS 300MG/12.5MG [Suspect]
     Indication: ARRHYTHMIA SUPRAVENTRICULAR
     Route: 048
     Dates: end: 20050530
  3. PLAVIX [Suspect]
     Indication: HYPERTENSION
     Route: 048
     Dates: end: 20050530
  4. PLAVIX [Suspect]
     Indication: ARRHYTHMIA SUPRAVENTRICULAR
     Route: 048
     Dates: end: 20050530
  5. AMLODIPINE BESYLATE [Suspect]
     Indication: HYPERTENSION
     Dates: end: 20050530
  6. AMLODIPINE BESYLATE [Suspect]
     Indication: ARRHYTHMIA SUPRAVENTRICULAR
     Dates: end: 20050530

REACTIONS (6)
  - ALANINE AMINOTRANSFERASE INCREASED [None]
  - ASPARTATE AMINOTRANSFERASE INCREASED [None]
  - BLOOD ALKALINE PHOSPHATASE INCREASED [None]
  - BLOOD BILIRUBIN INCREASED [None]
  - GAMMA-GLUTAMYLTRANSFERASE INCREASED [None]
  - HEPATITIS [None]
